FAERS Safety Report 8436711-0 (Version None)
Quarter: 2012Q2

REPORT INFORMATION
  Report Type: 
  Country: None (occurrence: None)
  Receive Date: 20120614
  Receipt Date: 20120605
  Transmission Date: 20120825
  Serious: Yes (Hospitalization)
  Sender: FDA-Public Use
  Company Number: JP-BRISTOL-MYERS SQUIBB COMPANY-16098139

PATIENT
  Age: 46 Year
  Sex: Female

DRUGS (9)
  1. FELBINAC [Concomitant]
  2. LOXONIN [Concomitant]
     Dosage: 60MGX3
  3. BREDININ [Concomitant]
  4. ORENCIA [Suspect]
     Indication: RHEUMATOID ARTHRITIS
     Dosage: 500 MG UNTIL 10 CYCLES AND 750 MG UNTIL 13 CYCLES,
     Route: 041
     Dates: start: 20101030, end: 20110905
  5. TACROLIMUS [Concomitant]
  6. LANSOPRAZOLE [Concomitant]
     Dosage: 15MGX2
  7. METHOTREXATE [Suspect]
  8. PREDNISOLONE [Concomitant]
     Dosage: UNK-23NOV11:7.5MG 6MG:24OCT10-21DEC10 5MG:22DEC10-18JAN11 4MG:19JAN11-ONG
  9. ETANERCEPT [Concomitant]

REACTIONS (1)
  - LYMPHOMA [None]
